FAERS Safety Report 26172597 (Version 1)
Quarter: 2025Q4

REPORT INFORMATION
  Report Type: Spontaneous
  Country: EU (occurrence: EU)
  Receive Date: 20251218
  Receipt Date: 20251218
  Transmission Date: 20260117
  Serious: Yes (Other)
  Sender: CHEPLAPHARM
  Company Number: EU-CHEPLA-2025014142

PATIENT
  Age: 70 Year

DRUGS (5)
  1. QUETIAPINE [Suspect]
     Active Substance: QUETIAPINE
     Indication: Delirium
     Dosage: DAILY DOSE: 25 MILLIGRAM
  2. ASPIRIN [Concomitant]
     Active Substance: ASPIRIN
     Indication: Antiplatelet therapy
  3. ENOXAPARIN [Concomitant]
     Active Substance: ENOXAPARIN
     Indication: Thrombotic stroke
  4. Amoxicillin?clavulanate [Concomitant]
     Indication: Evidence based treatment
     Dosage: 875/125 MG TID
  5. HALOPERIDOL [Concomitant]
     Active Substance: HALOPERIDOL
     Indication: Delirium
     Dosage: 1.4 MG PER OS QD?DAILY DOSE: 1.4 MILLIGRAM
     Route: 048

REACTIONS (8)
  - Consciousness fluctuating [Recovered/Resolved]
  - Hallucination [Recovered/Resolved]
  - Sleep apnoea syndrome [Recovered/Resolved]
  - Restless legs syndrome [Recovered/Resolved]
  - Dysphagia [Recovered/Resolved]
  - Somnolence [Recovered/Resolved]
  - Agitation [Recovered/Resolved]
  - Off label use [Recovered/Resolved]
